APPROVED DRUG PRODUCT: DIPHENHYDRAMINE HYDROCHLORIDE
Active Ingredient: DIPHENHYDRAMINE HYDROCHLORIDE
Strength: 50MG
Dosage Form/Route: CAPSULE;ORAL
Application: A088880 | Product #001
Applicant: PIONEER PHARMACEUTICALS INC
Approved: Dec 20, 1985 | RLD: No | RS: No | Type: DISCN